FAERS Safety Report 8932118 (Version 2)
Quarter: 2012Q4

REPORT INFORMATION
  Report Type: Report from Study
  Country: CA (occurrence: CA)
  Receive Date: 20121128
  Receipt Date: 20121210
  Transmission Date: 20130627
  Serious: Yes (Hospitalization, Other)
  Sender: FDA-Public Use
  Company Number: CA-JNJFOC-20121013867

PATIENT
  Age: 22 Year
  Sex: Male
  Weight: 99.79 kg

DRUGS (3)
  1. REMICADE [Suspect]
     Indication: CROHN^S DISEASE
     Route: 042
     Dates: start: 20120313
  2. REMICADE [Suspect]
     Indication: CROHN^S DISEASE
     Route: 042
     Dates: start: 201209
  3. A MULTIVITAMIN [Concomitant]
     Route: 048

REACTIONS (3)
  - Crohn^s disease [Recovering/Resolving]
  - Ileostomy [Recovering/Resolving]
  - Proctocolectomy [Unknown]
